FAERS Safety Report 10644423 (Version 4)
Quarter: 2016Q2

REPORT INFORMATION
  Report Type: Report from Study
  Country: US (occurrence: US)
  Receive Date: 20141210
  Receipt Date: 20160404
  Transmission Date: 20160815
  Serious: Yes (Disabling)
  Sender: FDA-Public Use
  Company Number: US-ACTELION-A-US2014-109120

PATIENT
  Age: 79 Year
  Sex: Female

DRUGS (14)
  1. MACITENTAN [Suspect]
     Active Substance: MACITENTAN
     Indication: INTERSTITIAL LUNG DISEASE
     Dosage: 10 MG, QD
     Route: 048
     Dates: start: 20141030, end: 20160317
  2. PRAMIPEXOLE. [Concomitant]
     Active Substance: PRAMIPEXOLE
  3. ADCIRCA [Concomitant]
     Active Substance: TADALAFIL
  4. RENVELA [Concomitant]
     Active Substance: SEVELAMER CARBONATE
  5. ASPIRIN. [Concomitant]
     Active Substance: ASPIRIN
  6. TRADJENTA [Concomitant]
     Active Substance: LINAGLIPTIN
  7. LEVEMIR [Concomitant]
     Active Substance: INSULIN DETEMIR
  8. POTASSIUM [Concomitant]
     Active Substance: POTASSIUM
  9. TORSEMIDE. [Concomitant]
     Active Substance: TORSEMIDE
  10. METOLAZONE. [Concomitant]
     Active Substance: METOLAZONE
  11. SYNTHROID [Concomitant]
     Active Substance: LEVOTHYROXINE SODIUM
  12. MAGNESIUM [Concomitant]
     Active Substance: MAGNESIUM
  13. GABAPENTIN. [Concomitant]
     Active Substance: GABAPENTIN
  14. CYMBALTA [Concomitant]
     Active Substance: DULOXETINE HYDROCHLORIDE

REACTIONS (4)
  - Pruritus [Unknown]
  - Dry skin [Unknown]
  - Rash pruritic [Not Recovered/Not Resolved]
  - Swelling [Unknown]

NARRATIVE: CASE EVENT DATE: 20141101
